FAERS Safety Report 9370754 (Version 3)
Quarter: 2013Q3

REPORT INFORMATION
  Report Type: Spontaneous
  Country: JP (occurrence: JP)
  Receive Date: 20130626
  Receipt Date: 20130822
  Transmission Date: 20140515
  Serious: Yes (Hospitalization)
  Sender: FDA-Public Use
  Company Number: JP-B.I. PHARMACEUTICALS,INC./RIDGEFIELD-2013-BI-13412GD

PATIENT
  Age: 73 Year
  Sex: Female
  Weight: 45 kg

DRUGS (8)
  1. SIFROL [Suspect]
     Indication: PARKINSON^S DISEASE
     Dosage: 1 MG
     Route: 065
     Dates: end: 20121121
  2. LEVODOPA/BENSERAZIDE [Concomitant]
     Indication: PARKINSON^S DISEASE
     Route: 065
  3. VOGLIBOSE OD [Concomitant]
     Indication: DIABETES MELLITUS
     Dosage: 0.6 MG
     Route: 048
  4. MEVARICH [Concomitant]
     Dosage: 10 MG
     Route: 048
  5. DIOVAN [Concomitant]
     Indication: PARKINSON^S DISEASE
     Dosage: 8 MG
     Route: 048
  6. LENDORMIN [Concomitant]
     Indication: INSOMNIA
     Dosage: 0.25 MG
     Route: 048
  7. EC-DOPARL [Concomitant]
     Indication: PARKINSON^S DISEASE
     Dosage: 1.5 MG
     Route: 048
  8. RIVOTRIL [Concomitant]
     Indication: PARKINSON^S DISEASE
     Dosage: 0.5 MG
     Route: 048

REACTIONS (2)
  - Camptocormia [Not Recovered/Not Resolved]
  - Back pain [Not Recovered/Not Resolved]
